FAERS Safety Report 4495014-X (Version None)
Quarter: 2004Q4

REPORT INFORMATION
  Report Type: 
  Country: None (occurrence: None)
  Receive Date: 20041105
  Receipt Date: 20041105
  Transmission Date: 20050328
  Serious: Yes (Life-Threatening, Hospitalization)
  Sender: FDA-Public Use
  Company Number: None

PATIENT
  Sex: Female
  Weight: 57.1532 kg

DRUGS (20)
  1. PIOGLITAZONE HCL [Suspect]
     Dosage: 45 MG / QD / PO
     Route: 048
     Dates: start: 20030825
  2. PLACEBO [Suspect]
  3. MVI CENTRUM SILVER [Concomitant]
  4. PREMARIN [Concomitant]
  5. BENGAY [Concomitant]
  6. VITAMIN E [Concomitant]
  7. CALCIUM [Concomitant]
  8. ERYTHRO-TABS [Concomitant]
  9. REMINYL [Concomitant]
  10. ZOLOFT [Concomitant]
  11. ERYTHROMYCIN [Concomitant]
  12. SELENIUM TRACE METAL ADDITIVE [Concomitant]
  13. GARLIC [Concomitant]
  14. FOLIC ACID [Concomitant]
  15. L LYSINE [Concomitant]
  16. VIT E [Concomitant]
  17. FISH OIL OMEGA 3 [Concomitant]
  18. VITAMIN B COMPLEX CAP [Concomitant]
  19. ASPIRIN [Concomitant]
  20. ENALAPRIL [Concomitant]

REACTIONS (2)
  - DIZZINESS [None]
  - SYNCOPE [None]
